FAERS Safety Report 20641147 (Version 1)
Quarter: 2022Q1

REPORT INFORMATION
  Report Type: Report from Study
  Country: JP (occurrence: JP)
  Receive Date: 20220327
  Receipt Date: 20220327
  Transmission Date: 20220423
  Serious: Yes (Death, Hospitalization)
  Sender: FDA-Public Use
  Company Number: JP-JNJJAKJPN-A20200545

PATIENT
  Age: 46 Year
  Sex: Male

DRUGS (10)
  1. TRACLEER [Suspect]
     Active Substance: BOSENTAN
     Indication: Skin ulcer
     Dosage: IN THE MORNING AND EVENING
     Route: 048
     Dates: start: 20151124, end: 20160125
  2. TRACLEER [Suspect]
     Active Substance: BOSENTAN
     Indication: Skin ulcer
     Dosage: IN THE MORNING AND EVENING
     Route: 048
     Dates: start: 20160126, end: 20180520
  3. JUVELA [Concomitant]
     Active Substance: .ALPHA.-TOCOPHEROL\RETINOL
     Indication: Peripheral vascular disorder
     Dosage: 100 MG, TID
     Route: 048
     Dates: start: 2013, end: 201805
  4. BERAPROST SODIUM [Concomitant]
     Active Substance: BERAPROST SODIUM
     Indication: Peripheral vascular disorder
     Dosage: 40 MG, TID
     Route: 048
     Dates: start: 2013, end: 201805
  5. PREDONINE [Concomitant]
     Active Substance: PREDNISOLONE
     Indication: Inflammation
     Dosage: 15 MG, QD
     Route: 048
     Dates: start: 2013
  6. PREDONINE [Concomitant]
     Active Substance: PREDNISOLONE
     Dosage: THERAPY END DATE /OCT/2018
     Route: 048
  7. NEXIUM [Concomitant]
     Active Substance: ESOMEPRAZOLE MAGNESIUM
     Indication: Gastrooesophageal reflux disease
     Dosage: 10 MG, QD
     Route: 048
     Dates: start: 2013
  8. CALCIUM CARBONATE\CHOLECALCIFEROL\MAGNESIUM CARBONATE [Concomitant]
     Active Substance: CALCIUM CARBONATE\CHOLECALCIFEROL\MAGNESIUM CARBONATE
     Indication: Osteoporosis
     Dosage: 2 DF, QD
     Route: 048
     Dates: start: 20160126, end: 201805
  9. VONOPRAZAN FUMARATE [Concomitant]
     Active Substance: VONOPRAZAN FUMARATE
     Indication: Gastrooesophageal reflux disease
     Dosage: THERAPY END DATE /OCT/2018
     Route: 048
     Dates: start: 20180320
  10. AMLODIPINE [Concomitant]
     Active Substance: AMLODIPINE BESYLATE
     Indication: Hypertension
     Route: 048
     Dates: start: 20161024, end: 201805

REACTIONS (4)
  - Acute kidney injury [Fatal]
  - Scleroderma renal crisis [Fatal]
  - Multiple organ dysfunction syndrome [Fatal]
  - Hepatic function abnormal [Recovered/Resolved]

NARRATIVE: CASE EVENT DATE: 20161205
